FAERS Safety Report 5150824-0 (Version None)
Quarter: 2006Q4

REPORT INFORMATION
  Report Type: 
  Country: None (occurrence: None)
  Receive Date: 20061108
  Receipt Date: 20061026
  Transmission Date: 20070319
  Serious: Yes (Other)
  Sender: FDA-Public Use
  Company Number: 02100-JPN-06-0511

PATIENT
  Age: 63 Year
  Sex: Male

DRUGS (3)
  1. CILOSTAZOL [Suspect]
     Indication: CEREBRAL INFARCTION
     Dosage: 100 MG/200 MG ORAL
     Route: 048
     Dates: start: 20040519, end: 20040615
  2. CILOSTAZOL [Suspect]
     Indication: CEREBRAL INFARCTION
     Dosage: 100 MG/200 MG ORAL
     Route: 048
     Dates: start: 20040616, end: 20041228
  3. ASPIRIN [Concomitant]

REACTIONS (1)
  - CONVULSION [None]
